FAERS Safety Report 5112599-0 (Version None)
Quarter: 2006Q3

REPORT INFORMATION
  Report Type: 
  Country: None (occurrence: None)
  Receive Date: 20060802
  Receipt Date: 20060607
  Transmission Date: 20061208
  Serious: Yes (Other)
  Sender: FDA-Public Use
  Company Number: 200614995US

PATIENT
  Age: 20 Year
  Sex: Male

DRUGS (1)
  1. KETEK [Suspect]
     Indication: SINUSITIS
     Dosage: 400 MG QD PO
     Route: 048
     Dates: start: 20060401, end: 20060401

REACTIONS (1)
  - STOMATITIS [None]
